FAERS Safety Report 8533020-6 (Version None)
Quarter: 2012Q2

REPORT INFORMATION
  Report Type: 
  Country: None (occurrence: None)
  Receive Date: 20120412
  Receipt Date: 20100303
  Transmission Date: 20120825
  Serious: Yes (Other)
  Sender: FDA-Public Use
  Company Number: PHEH2010US01766

PATIENT
  Sex: Female

DRUGS (6)
  1. KLONOPIN [Concomitant]
  2. ESTALIS COMBIPATCH (ESTRADIOL, NORETHISTERONE ACETATE) TRANS-THERAPEUT [Suspect]
     Indication: NIGHT SWEATS
     Dosage: 0.05MG/0.14MG, TRANSDERMAL
     Route: 062
  3. ESTALIS COMBIPATCH (ESTRADIOL, NORETHISTERONE ACETATE) TRANS-THERAPEUT [Suspect]
     Indication: SLEEP DISORDER
     Dosage: 0.05MG/0.14MG, TRANSDERMAL
     Route: 062
  4. VITAMINS NOS (VITAMINS NOS) [Concomitant]
  5. CALCIUM CARBONATE [Concomitant]
  6. QUESTRAN [Concomitant]

REACTIONS (2)
  - BREAST MASS [None]
  - BREAST CANCER [None]
